FAERS Safety Report 9527205 (Version 2)
Quarter: 2013Q3

REPORT INFORMATION
  Report Type: Spontaneous
  Country: US (occurrence: US)
  Receive Date: 20130917
  Receipt Date: 20130918
  Transmission Date: 20140515
  Serious: Yes (Life-Threatening, Hospitalization)
  Sender: FDA-Public Use
  Company Number: US-ROCHE-1276002

PATIENT
  Age: 50 Year
  Sex: Male

DRUGS (3)
  1. AVASTIN [Suspect]
     Indication: COLON CANCER STAGE IV
     Route: 042
     Dates: start: 20130806, end: 20130903
  2. 5-FLUOROURACIL [Concomitant]
     Indication: COLON CANCER STAGE IV
     Route: 065
     Dates: start: 20130723, end: 20130903
  3. OXALIPLATIN [Concomitant]
     Indication: COLON CANCER STAGE IV
     Route: 042

REACTIONS (1)
  - Large intestinal obstruction [Recovering/Resolving]
